FAERS Safety Report 5222930-3 (Version None)
Quarter: 2007Q1

REPORT INFORMATION
  Report Type: 
  Country: None (occurrence: None)
  Receive Date: 20061208
  Receipt Date: 20060315
  Transmission Date: 20070707
  Serious: Yes (Other)
  Sender: FDA-Public Use
  Company Number: 2006036392

PATIENT
  Age: 44 Year
  Sex: Male
  Weight: 78.4723 kg

DRUGS (2)
  1. VIAGRA [Suspect]
     Indication: ERECTILE DYSFUNCTION
     Dosage: 50 MG (50 MG, 1 ),
     Dates: start: 20030701, end: 20030701
  2. CELEBREX [Concomitant]

REACTIONS (2)
  - CYANOPSIA [None]
  - ERECTION INCREASED [None]
